FAERS Safety Report 23784760 (Version 3)
Quarter: 2024Q3

REPORT INFORMATION
  Report Type: Spontaneous
  Country: JP (occurrence: JP)
  Receive Date: 20240425
  Receipt Date: 20240918
  Transmission Date: 20241016
  Serious: Yes (Other)
  Sender: GENMAB
  Company Number: JP-GENMAB-2024-01055AA

PATIENT
  Age: 8 Decade
  Sex: Female

DRUGS (6)
  1. EPKINLY [Suspect]
     Active Substance: EPCORITAMAB-BYSP
     Indication: Diffuse large B-cell lymphoma refractory
     Dosage: 0.16 MILLIGRAM, SINGLE
     Route: 058
     Dates: start: 20240115, end: 20240115
  2. EPKINLY [Suspect]
     Active Substance: EPCORITAMAB-BYSP
     Dosage: 0.8 MILLIGRAM, SINGLE
     Route: 058
     Dates: start: 20240122, end: 20240122
  3. EPKINLY [Suspect]
     Active Substance: EPCORITAMAB-BYSP
     Dosage: 48 MILLIGRAM, WEEKLY
     Route: 058
     Dates: start: 20240129, end: 20240205
  4. PREDNISOLONE [Concomitant]
     Active Substance: PREDNISOLONE
     Indication: Prophylaxis
     Dosage: UNK, DAY 1, DAY 2, DAY 3 AND DAY 4 OF ADMINISTRATION OF EPKINLY
     Dates: start: 20240115, end: 20240208
  5. POLARAMINE [Concomitant]
     Active Substance: DEXCHLORPHENIRAMINE MALEATE
     Indication: Prophylaxis
     Dosage: UNK, DAY 1 OF ADMINISTRATION OF EPKINLY
     Dates: start: 20240115, end: 20240205
  6. ACETAMINOPHEN [Concomitant]
     Active Substance: ACETAMINOPHEN
     Indication: Prophylaxis
     Dosage: UNK, DAY 1 OF ADMINISTRATION OF EPKINLY
     Dates: start: 20240115, end: 20240205

REACTIONS (3)
  - Diffuse large B-cell lymphoma refractory [Unknown]
  - Cytokine release syndrome [Recovered/Resolved]
  - Tumour associated fever [Recovered/Resolved]

NARRATIVE: CASE EVENT DATE: 20240101
